FAERS Safety Report 9248397 (Version 1)
Quarter: 2013Q2

REPORT INFORMATION
  Report Type: Report from Study
  Country: US (occurrence: US)
  Receive Date: 20130423
  Receipt Date: 20130423
  Transmission Date: 20140414
  Serious: Yes (Other)
  Sender: FDA-Public Use
  Company Number: US-ROCHE-1215190

PATIENT
  Age: 59 Year
  Sex: Female
  Weight: 81.86 kg

DRUGS (14)
  1. PEGASYS [Suspect]
     Indication: CHRONIC HEPATITIS C
     Route: 065
     Dates: start: 20130203, end: 20130213
  2. PEGASYS [Suspect]
     Route: 065
     Dates: start: 20130331
  3. PEGASYS [Suspect]
     Route: 065
     Dates: start: 20130407
  4. PEGASYS [Suspect]
     Route: 065
     Dates: start: 20130414
  5. PEGASYS [Suspect]
     Route: 058
     Dates: start: 20130203, end: 20130203
  6. RIBASPHERE [Suspect]
     Indication: CHRONIC HEPATITIS C
     Route: 065
     Dates: start: 20130203, end: 20130213
  7. RIBASPHERE [Suspect]
     Route: 065
     Dates: start: 20130331
  8. RIBASPHERE [Suspect]
     Route: 048
     Dates: start: 20130203, end: 20130206
  9. WELLBUTRIN XL [Concomitant]
     Indication: DEPRESSION
     Route: 065
  10. CYMBALTA [Concomitant]
     Indication: DEPRESSION
     Route: 048
  11. CYMBALTA [Concomitant]
     Indication: ANXIETY
  12. SEROQUEL XR [Concomitant]
     Indication: DEPRESSION
     Route: 048
  13. SEROQUEL XR [Concomitant]
     Indication: ANXIETY
  14. CLONAZEPAM [Concomitant]
     Indication: ANXIETY
     Dosage: AS REQUIRED
     Route: 048

REACTIONS (4)
  - Depression [Recovering/Resolving]
  - Anxiety [Recovering/Resolving]
  - Anger [Recovering/Resolving]
  - Mental disorder [Unknown]
